FAERS Safety Report 14685959 (Version 1)
Quarter: 2018Q1

REPORT INFORMATION
  Report Type: Spontaneous
  Country: US (occurrence: US)
  Receive Date: 20180326
  Receipt Date: 20180326
  Transmission Date: 20180509
  Serious: No
  Sender: FDA-Public Use
  Company Number: None

PATIENT
  Age: 68 Year
  Sex: Female
  Weight: 80.55 kg

DRUGS (8)
  1. LEVOCETIRZINE [Concomitant]
  2. VITAMIN D [Concomitant]
     Active Substance: CHOLECALCIFEROL
  3. LAMECTROGINE [Concomitant]
  4. THERATEARS [Suspect]
     Active Substance: CARBOXYMETHYLCELLULOSE SODIUM
     Indication: DRY EYE
     Route: 047
  5. AMLODIPINE BESYLATE. [Concomitant]
     Active Substance: AMLODIPINE BESYLATE
  6. LISINOPRIL. [Concomitant]
     Active Substance: LISINOPRIL
  7. IRON [Concomitant]
     Active Substance: IRON
  8. THYROID SUPPORT [Concomitant]
     Active Substance: HOMEOPATHICS

REACTIONS (3)
  - Ocular hyperaemia [None]
  - Lacrimation increased [None]
  - Eye pruritus [None]

NARRATIVE: CASE EVENT DATE: 20180318
